FAERS Safety Report 23743134 (Version 3)
Quarter: 2024Q2

REPORT INFORMATION
  Report Type: Spontaneous
  Country: JP (occurrence: JP)
  Receive Date: 20240415
  Receipt Date: 20240529
  Transmission Date: 20240716
  Serious: Yes (Hospitalization)
  Sender: FDA-Public Use
  Company Number: JP-AMGEN-JPNSP2024072272

PATIENT
  Age: 81 Year
  Sex: Female

DRUGS (1)
  1. EVENITY [Suspect]
     Active Substance: ROMOSOZUMAB-AQQG
     Indication: Osteoporosis
     Dosage: 210 MILLIGRAM
     Route: 058
     Dates: start: 202311

REACTIONS (2)
  - Decreased appetite [Recovered/Resolved]
  - Therapy interrupted [Unknown]

NARRATIVE: CASE EVENT DATE: 20231208
